FAERS Safety Report 6855654-7 (Version None)
Quarter: 2010Q3

REPORT INFORMATION
  Report Type: 
  Country: None (occurrence: None)
  Receive Date: 20100719
  Receipt Date: 20091020
  Transmission Date: 20110219
  Serious: No
  Sender: FDA-Public Use
  Company Number: US-KINGPHARMUSA00001-K200901299

PATIENT
  Age: 65 Year
  Sex: Female
  Weight: 87.528 kg

DRUGS (6)
  1. LEVOXYL [Suspect]
     Indication: THYROID DISORDER
     Dosage: 88 MCG, QD
     Route: 048
     Dates: start: 20060101
  2. OMEPRAZOLE [Concomitant]
     Indication: IRRITABLE BOWEL SYNDROME
     Dosage: UNK
     Route: 048
  3. METOCLOPRAMIDE [Concomitant]
     Indication: IRRITABLE BOWEL SYNDROME
     Dosage: UNK
     Route: 048
  4. OSALAZINE [Concomitant]
     Indication: IRRITABLE BOWEL SYNDROME
     Dosage: UNK
     Route: 048
  5. WARFARIN SODIUM [Concomitant]
     Indication: COAGULOPATHY
     Dosage: UNK
     Route: 048
     Dates: start: 19640101
  6. PLAQUENIL [Concomitant]
     Indication: FIBROMYALGIA
     Dosage: UNK
     Route: 048

REACTIONS (1)
  - DIARRHOEA [None]
